FAERS Safety Report 7470644-1 (Version None)
Quarter: 2011Q2

REPORT INFORMATION
  Report Type: 
  Country: None (occurrence: None)
  Receive Date: 20110510
  Receipt Date: 20110407
  Transmission Date: 20111010
  Serious: No
  Sender: FDA-Public Use
  Company Number: US-BAYER-2011-031877

PATIENT
  Age: 65 Year
  Sex: Female
  Weight: 73 kg

DRUGS (4)
  1. HALCION [Concomitant]
     Dosage: UNK
     Route: 048
  2. ALEVE (CAPLET) [Suspect]
     Dosage: 220 MG, QD, BOTTLE COUNT 24S
     Route: 048
     Dates: start: 20110406
  3. TYLENOL (CAPLET) [Concomitant]
     Dosage: 1 DF, ONCE
     Route: 048
  4. ALEVE (CAPLET) [Suspect]
     Indication: ANALGESIC THERAPY
     Dosage: 220 MG, QD, BOTTLE COUNT 24S
     Route: 048
     Dates: start: 20110201, end: 20110201

REACTIONS (3)
  - TENSION [None]
  - COUGH [None]
  - BURNING SENSATION [None]
